FAERS Safety Report 5099704-X (Version None)
Quarter: 2006Q3

REPORT INFORMATION
  Report Type: 
  Country: None (occurrence: None)
  Receive Date: 20060908
  Receipt Date: 20060907
  Transmission Date: 20061208
  Serious: Yes (Congenital Anomaly)
  Sender: FDA-Public Use
  Company Number: US-GLAXOSMITHKLINE-A0588008B

PATIENT
  Sex: Female
  Weight: 2.7 kg

DRUGS (3)
  1. BUPROPION HCL [Suspect]
     Indication: INTENTIONAL OVERDOSE
     Dosage: 7TAB PER DAY
     Dates: start: 20051231, end: 20051231
  2. PRENATAL VITAMINS [Concomitant]
  3. ALCOHOL [Concomitant]

REACTIONS (5)
  - ATRIAL SEPTAL DEFECT [None]
  - CAESAREAN SECTION [None]
  - DRUG EXPOSURE DURING PREGNANCY [None]
  - PATENT DUCTUS ARTERIOSUS [None]
  - POOR WEIGHT GAIN NEONATAL [None]
